FAERS Safety Report 5573134-6 (Version None)
Quarter: 2007Q4

REPORT INFORMATION
  Report Type: 
  Country: None (occurrence: None)
  Receive Date: 20071224
  Receipt Date: 20071217
  Transmission Date: 20080405
  Serious: Yes (Other)
  Sender: FDA-Public Use
  Company Number: GB-AVENTIS-200721606GDDC

PATIENT
  Age: 47 Year
  Sex: Female
  Weight: 139 kg

DRUGS (9)
  1. LANTUS [Suspect]
     Indication: DIABETES MELLITUS
     Route: 058
     Dates: start: 20070929
  2. LANTUS [Suspect]
     Route: 058
     Dates: start: 20071120, end: 20071122
  3. ARTHROTEC [Concomitant]
     Route: 048
  4. CITALOPRAM HYDROBROMIDE [Concomitant]
     Route: 048
  5. FOLIC ACID [Concomitant]
     Route: 048
  6. FRUSEMIDE [Concomitant]
     Route: 048
  7. GAVISCON [Concomitant]
  8. GLIMEPIRIDE [Concomitant]
     Indication: DIABETES MELLITUS
     Route: 048
  9. SIMVASTATIN [Concomitant]
     Route: 048

REACTIONS (6)
  - AMNESIA [None]
  - DYSGEUSIA [None]
  - DYSPEPSIA [None]
  - GLYCOSYLATED HAEMOGLOBIN INCREASED [None]
  - HAIR GROWTH ABNORMAL [None]
  - NAUSEA [None]
